FAERS Safety Report 4667082-3 (Version None)
Quarter: 2005Q2

REPORT INFORMATION
  Report Type: 
  Country: None (occurrence: None)
  Receive Date: 20050520
  Receipt Date: 20041012
  Transmission Date: 20051028
  Serious: Yes (Other)
  Sender: FDA-Public Use
  Company Number: PHBS2004MX13788

PATIENT
  Age: 78 Year
  Sex: Male

DRUGS (2)
  1. ZOMETA [Suspect]
     Indication: MULTIPLE MYELOMA
     Route: 065
     Dates: end: 20041001
  2. EPOGEN [Concomitant]
     Dosage: 50000 IU/D
     Route: 065

REACTIONS (1)
  - OSTEONECROSIS [None]
